FAERS Safety Report 11119083 (Version 4)
Quarter: 2015Q3

REPORT INFORMATION
  Report Type: Report from Study
  Country: HR (occurrence: HR)
  Receive Date: 20150518
  Receipt Date: 20150715
  Transmission Date: 20151125
  Serious: Yes (Life-Threatening, Hospitalization)
  Sender: FDA-Public Use
  Company Number: HR-NOVOPROD-449108

PATIENT
  Age: 41 Year
  Sex: Male
  Weight: 130 kg

DRUGS (2)
  1. TUROCTOCOG ALFA 2000 IU [Suspect]
     Active Substance: TUROCTOCOG ALFA
     Indication: FACTOR VIII DEFICIENCY
     Dosage: 30 IU, BIW
     Route: 042
     Dates: start: 20141001, end: 20150512
  2. IMMUNATE                           /00286701/ [Concomitant]
     Dosage: 2000 IU, UNK
     Dates: start: 20150512

REACTIONS (1)
  - Acute myocardial infarction [Recovered/Resolved with Sequelae]

NARRATIVE: CASE EVENT DATE: 20150511
